FAERS Safety Report 23637429 (Version 1)
Quarter: 2024Q1

REPORT INFORMATION
  Report Type: Spontaneous
  Country: JP (occurrence: JP)
  Receive Date: 20240315
  Receipt Date: 20240315
  Transmission Date: 20240410
  Serious: Yes (Other)
  Sender: FDA-Public Use
  Company Number: JP-MALLINCKRODT-MNK202401721

PATIENT
  Sex: Male
  Weight: 55 kg

DRUGS (1)
  1. UVADEX [Suspect]
     Active Substance: METHOXSALEN
     Indication: Chronic graft versus host disease
     Dosage: UNK
     Route: 050
     Dates: start: 20240129

REACTIONS (3)
  - Vascular device infection [Unknown]
  - Pyrexia [Unknown]
  - Product use in unapproved indication [Unknown]

NARRATIVE: CASE EVENT DATE: 20240129
